FAERS Safety Report 4655649-8 (Version None)
Quarter: 2005Q2

REPORT INFORMATION
  Report Type: 
  Country: None (occurrence: None)
  Receive Date: 20050505
  Receipt Date: 20050422
  Transmission Date: 20051028
  Serious: Yes (Hospitalization, Other)
  Sender: FDA-Public Use
  Company Number: KII-2005-0016217

PATIENT
  Age: 58 Year
  Sex: Female

DRUGS (3)
  1. OXYCONTIN [Suspect]
     Indication: PAIN
     Dosage: ORAL
     Route: 048
  2. MORPHINE SULFATE [Suspect]
     Indication: PAIN
     Dosage: ORAL
     Route: 048
  3. METHYLPHENIDATE (METHYPHENIDATE) [Suspect]
     Dosage: ORAL
     Route: 048

REACTIONS (11)
  - AGITATION [None]
  - COMA [None]
  - DRUG SCREEN POSITIVE [None]
  - HYPERTENSION [None]
  - HYPERVENTILATION [None]
  - HYPOTENSION [None]
  - PNEUMONIA VIRAL [None]
  - PYREXIA [None]
  - SEPSIS [None]
  - TACHYCARDIA [None]
  - WHITE BLOOD CELL COUNT INCREASED [None]
